FAERS Safety Report 6015260-3 (Version None)
Quarter: 2008Q4

REPORT INFORMATION
  Report Type: 
  Country: None (occurrence: None)
  Receive Date: 20081219
  Receipt Date: 20081219
  Transmission Date: 20090506
  Serious: No
  Sender: FDA-Public Use
  Company Number: None

PATIENT
  Sex: Female

DRUGS (1)
  1. TRAMADOL HCL [Suspect]
     Dosage: 50MG TABLET 50 MG Q6H ORAL
     Route: 048
     Dates: start: 20070111, end: 20081218

REACTIONS (3)
  - NAUSEA [None]
  - SEDATION [None]
  - VOMITING [None]
